FAERS Safety Report 23158671 (Version 1)
Quarter: 2023Q4

REPORT INFORMATION
  Report Type: Spontaneous
  Country: FR (occurrence: FR)
  Receive Date: 20231108
  Receipt Date: 20231108
  Transmission Date: 20240110
  Serious: Yes (Hospitalization)
  Sender: FDA-Public Use
  Company Number: FR-MYLANLABS-2023M1117468

PATIENT
  Age: 34 Year
  Sex: Female

DRUGS (8)
  1. NEOSTIGMINE [Suspect]
     Active Substance: NEOSTIGMINE
     Indication: Procedural headache
     Dosage: 1.5 MILLIGRAM
     Route: 042
  2. ACETAMINOPHEN [Suspect]
     Active Substance: ACETAMINOPHEN
     Indication: Procedural headache
     Dosage: UNK, REGULAR ADMINISTRATION
     Route: 065
  3. ACETAMINOPHEN [Suspect]
     Active Substance: ACETAMINOPHEN
     Indication: Neck pain
  4. NEFOPAM [Suspect]
     Active Substance: NEFOPAM
     Indication: Procedural headache
     Dosage: UNK, REGULAR ADMINISTRATION
     Route: 065
  5. NEFOPAM [Suspect]
     Active Substance: NEFOPAM
     Indication: Neck pain
  6. TRAMADOL [Suspect]
     Active Substance: TRAMADOL\TRAMADOL HYDROCHLORIDE
     Indication: Procedural headache
     Dosage: UNK, REGULAR ADMINISTRATION
     Route: 065
  7. TRAMADOL [Suspect]
     Active Substance: TRAMADOL\TRAMADOL HYDROCHLORIDE
     Indication: Neck pain
  8. ATROPINE [Suspect]
     Active Substance: ATROPINE
     Indication: Procedural headache
     Dosage: 0.75 MILLIGRAM, OVER 15 MINUTES
     Route: 042

REACTIONS (3)
  - Reversible cerebral vasoconstriction syndrome [Recovered/Resolved]
  - Drug ineffective [Unknown]
  - Off label use [Unknown]
